FAERS Safety Report 5262237-1 (Version None)
Quarter: 2007Q1

REPORT INFORMATION
  Report Type: 
  Country: None (occurrence: None)
  Receive Date: 20070312
  Receipt Date: 20070227
  Transmission Date: 20070707
  Serious: Yes (Death)
  Sender: FDA-Public Use
  Company Number: US-NOVOPROD-261160

PATIENT
  Age: 70 Year
  Sex: Female

DRUGS (20)
  1. NOVOSEVEN [Suspect]
     Indication: POST PROCEDURAL HAEMORRHAGE
     Dosage: 9.6 MG, TID ON POD 4
     Route: 042
  2. NOVOSEVEN [Suspect]
     Dosage: 9.6 MG, TID POD 8
     Route: 042
  3. NOVOSEVEN [Suspect]
     Dosage: 9.6 MG, BID POD 10
     Route: 042
  4. NOVOSEVEN [Suspect]
     Dosage: 9.6 MG, BID POD 11
     Route: 042
  5. NOVOSEVEN [Suspect]
     Dosage: 9.6 MG, BID POD 12
     Route: 042
  6. NOVOSEVEN [Suspect]
     Dosage: 9.6 MG, BID POD 13
     Route: 042
  7. NOVOSEVEN [Suspect]
     Dosage: 9.6 MG, BID POD 14
     Route: 042
  8. NOVOSEVEN [Suspect]
     Dosage: 9.6 MG, BID POD 15
     Route: 042
  9. NOVOSEVEN [Suspect]
     Dosage: 9.6 MG, BID POD 16
     Route: 042
  10. NOVOSEVEN [Suspect]
     Dosage: 9.6 MG, SINGLE POD 18
     Route: 042
  11. NOVOSEVEN [Suspect]
     Dosage: 4.8 MG, SINGLE POD 18
     Route: 042
  12. PLATELETS [Concomitant]
  13. RED BLOOD CELLS [Concomitant]
  14. DESMOPRESSIN [Concomitant]
     Dosage: .3 UG/KG, UNK
  15. IMMUNE GLOBULIN (HUMAN) [Concomitant]
     Indication: THROMBOCYTOPENIA
  16. CRYOPRECIPITATES [Concomitant]
     Dosage: 10 U, UNK
  17. WINRHO [Concomitant]
  18. VINCRISTINE [Concomitant]
  19. RITUXIMAB [Concomitant]
  20. METHYLPREDNISOLONE 16MG TAB [Concomitant]

REACTIONS (4)
  - PNEUMONIA BACTERIAL [None]
  - PNEUMONIA FUNGAL [None]
  - SEPTIC SHOCK [None]
  - THERAPEUTIC RESPONSE DECREASED [None]
